FAERS Safety Report 9224470 (Version 1)
Quarter: 2013Q1

REPORT INFORMATION
  Report Type: Spontaneous
  Country: US (occurrence: None)
  Receive Date: 20120912
  Receipt Date: 20120912
  Transmission Date: 20140127
  Serious: No
  Sender: FDA-Public Use
  Company Number: 2012SP025734

PATIENT
  Age: 56 Year
  Sex: Female

DRUGS (5)
  1. VICTRELIS 200 MG [Suspect]
     Indication: PRODUCT USED FOR UNKNOWN INDICATION
  2. PEG-INTRON [Suspect]
     Indication: PRODUCT USED FOR UNKNOWN INDICATION
  3. RIBAVIRIN [Suspect]
     Route: 048
  4. NEUPOGEN [Concomitant]
  5. PROCRIT [Concomitant]

REACTIONS (2)
  - White blood cell count decreased [None]
  - Red blood cell count decreased [None]
